FAERS Safety Report 9919536 (Version 1)
Quarter: 2014Q1

REPORT INFORMATION
  Report Type: Spontaneous
  Country: IN (occurrence: IN)
  Receive Date: 20140224
  Receipt Date: 20140224
  Transmission Date: 20141002
  Serious: Yes (Life-Threatening, Hospitalization, Other)
  Sender: FDA-Public Use
  Company Number: IN-B.I. PHARMACEUTICALS,INC./RIDGEFIELD-2014-BI-07901GD

PATIENT
  Age: 71 Year
  Sex: Male
  Weight: 52 kg

DRUGS (4)
  1. PRADAXA [Suspect]
     Indication: ATRIAL FIBRILLATION
     Dosage: 220 MG
     Route: 065
  2. ASPIRIN [Concomitant]
     Route: 065
  3. LEVETIRECETAM [Concomitant]
     Route: 065
  4. ATORVASTATIN [Concomitant]
     Route: 065

REACTIONS (7)
  - Shock haemorrhagic [Recovered/Resolved]
  - Cardiac arrest [Recovered/Resolved]
  - Ventricular tachycardia [Recovered/Resolved]
  - Lower gastrointestinal haemorrhage [Unknown]
  - Coagulopathy [Unknown]
  - Rectal haemorrhage [Unknown]
  - Electrocardiogram ST segment elevation [Unknown]
